FAERS Safety Report 6662478-2 (Version None)
Quarter: 2010Q1

REPORT INFORMATION
  Report Type: 
  Country: None (occurrence: None)
  Receive Date: 20100331
  Receipt Date: 20100329
  Transmission Date: 20100710
  Serious: Yes (Hospitalization)
  Sender: FDA-Public Use
  Company Number: FR-MERCK-1003FRA00116

PATIENT
  Age: 45 Year
  Sex: Male

DRUGS (16)
  1. ZOCOR [Suspect]
     Route: 048
     Dates: start: 20070101
  2. INIPOMP [Suspect]
     Route: 048
     Dates: start: 20070101
  3. METHOTREXATE [Suspect]
     Route: 048
  4. PERINDOPRIL ARGININE [Suspect]
     Route: 048
     Dates: start: 20070101
  5. DEROXAT [Concomitant]
     Route: 065
     Dates: end: 20090601
  6. ATARAX (ALPRAZOLAM) [Concomitant]
     Route: 065
     Dates: end: 20090601
  7. FOSAMAX [Concomitant]
     Route: 048
     Dates: start: 20070101
  8. CORTANCYL [Concomitant]
     Route: 065
     Dates: start: 20070101
  9. CREON [Concomitant]
     Route: 065
     Dates: start: 20070101
  10. TARDYFERON [Concomitant]
     Route: 065
     Dates: start: 20070101
  11. SPECIAFOLDINE [Concomitant]
     Route: 065
     Dates: start: 20070101
  12. ZOLPIDEM TARTRATE [Concomitant]
     Route: 065
     Dates: start: 20070101
  13. CALCIDOSE [Concomitant]
     Route: 065
     Dates: start: 20070101
  14. CHOLECALCIFEROL [Concomitant]
     Route: 065
     Dates: start: 20070101
  15. FORLAX [Concomitant]
     Route: 065
     Dates: start: 20070101
  16. BECILAN [Concomitant]
     Route: 065
     Dates: start: 20070101

REACTIONS (1)
  - GYNAECOMASTIA [None]
